FAERS Safety Report 12702831 (Version 2)
Quarter: 2016Q3

REPORT INFORMATION
  Report Type: Spontaneous
  Country: IT (occurrence: IT)
  Receive Date: 20160831
  Receipt Date: 20160914
  Transmission Date: 20161109
  Serious: Yes (Hospitalization)
  Sender: FDA-Public Use
  Company Number: PHHY2016IT117106

PATIENT
  Age: 68 Year
  Sex: Female

DRUGS (1)
  1. GLIVEC [Suspect]
     Active Substance: IMATINIB MESYLATE
     Indication: GASTROINTESTINAL STROMAL TUMOUR
     Dosage: 400 MG, QD
     Route: 048
     Dates: start: 20160101, end: 20160821

REACTIONS (6)
  - Palmar-plantar erythrodysaesthesia syndrome [Recovering/Resolving]
  - Rhabdomyolysis [Recovering/Resolving]
  - Burning sensation [Unknown]
  - Hyponatraemia [Recovering/Resolving]
  - Blood creatine phosphokinase increased [Unknown]
  - Myalgia [Recovered/Resolved]

NARRATIVE: CASE EVENT DATE: 20160821
